FAERS Safety Report 7537484-6 (Version None)
Quarter: 2011Q2

REPORT INFORMATION
  Report Type: 
  Country: None (occurrence: None)
  Receive Date: 20110609
  Receipt Date: 20110607
  Transmission Date: 20111010
  Serious: Yes (Hospitalization)
  Sender: FDA-Public Use
  Company Number: PHHO2011IT09746

PATIENT
  Sex: Female
  Weight: 80 kg

DRUGS (7)
  1. TASIGNA [Suspect]
     Indication: CHRONIC MYELOID LEUKAEMIA
     Dosage: UNK
     Route: 048
  2. ATENOLOL [Concomitant]
     Dosage: UNK
     Dates: start: 20110607
  3. ENOXAPARIN SODIUM [Concomitant]
     Indication: VENOUS INSUFFICIENCY
     Dosage: 4000 U, UNK
     Dates: start: 20110515
  4. ATENOLOL [Concomitant]
     Indication: HYPERTENSION
     Dosage: 75 MG, UNK
     Dates: start: 20101012, end: 20110605
  5. IRBESARTAN [Concomitant]
     Indication: HYPERTENSION
     Dosage: 150 MG, UNK
     Dates: start: 20101012
  6. EUTIROX [Concomitant]
     Indication: HYPOTHYROIDISM
     Dosage: 125 L/G
     Dates: start: 20101012
  7. DEURSIL [Concomitant]
     Indication: PROPHYLAXIS
     Dosage: 450 MG, UNK
     Dates: start: 20101012

REACTIONS (1)
  - CARDIAC FIBRILLATION [None]
